FAERS Safety Report 8240286-9 (Version None)
Quarter: 2012Q1

REPORT INFORMATION
  Report Type: 
  Country: None (occurrence: None)
  Receive Date: 20120328
  Receipt Date: 20120328
  Transmission Date: 20120608
  Serious: Yes (Hospitalization)
  Sender: FDA-Public Use
  Company Number: None

PATIENT
  Age: 41 Year
  Sex: Male
  Weight: 89.5 kg

DRUGS (1)
  1. LISINOPRIL [Suspect]
     Dosage: 40MG
     Route: 048

REACTIONS (1)
  - ANGIOEDEMA [None]
